FAERS Safety Report 8772117 (Version 3)
Quarter: 2013Q1

REPORT INFORMATION
  Report Type: Report from Study
  Country: JP (occurrence: JP)
  Receive Date: 20120906
  Receipt Date: 20130322
  Transmission Date: 20140127
  Serious: Yes (Other)
  Sender: FDA-Public Use
  Company Number: JP-009507513-2012SP032679

PATIENT
  Age: 67 Year
  Sex: Female
  Weight: 45 kg

DRUGS (11)
  1. PEGINTRON [Suspect]
     Indication: CHRONIC HEPATITIS C
     Dosage: 1.5 MICROGRAM PER KILOGRAM, QW
     Route: 058
     Dates: start: 20120314, end: 20120425
  2. PEGINTRON [Suspect]
     Dosage: 40UG, QW
     Route: 058
     Dates: start: 20120502, end: 20120517
  3. REBETOL [Suspect]
     Indication: CHRONIC HEPATITIS C
     Dosage: 400 MG, QD
     Route: 048
     Dates: start: 20120314, end: 20120425
  4. REBETOL [Suspect]
     Dosage: 200 MG, QD
     Route: 048
     Dates: start: 20120426, end: 20120524
  5. TELAVIC [Suspect]
     Indication: CHRONIC HEPATITIS C
     Dosage: 1500 MG, QD
     Route: 048
     Dates: start: 20120314, end: 20120517
  6. ZYLORIC [Concomitant]
     Dosage: START INTERVAL: 1 DAY, UPDATE (22JUN2012) : STOP DATE
     Route: 048
     Dates: start: 20120319, end: 20120524
  7. PRIMPERAN [Concomitant]
     Dosage: SINGLE USE, UPDATE (22JUN2012) : STOP DATE
     Route: 048
     Dates: start: 20120326, end: 20120530
  8. ALESION [Concomitant]
     Dosage: ALESION 20, UPDATE (22JUN2012) : STOP DATE
     Route: 048
     Dates: start: 20120319, end: 20120530
  9. MYSER (CYCLOSERINE) [Concomitant]
     Indication: RASH
     Dosage: UNK UNK, UNKNOWN
     Route: 061
     Dates: start: 20120321, end: 20120327
  10. MYSER (CYCLOSERINE) [Concomitant]
     Dosage: UNK
     Route: 061
     Dates: end: 20120530
  11. GASMOTIN [Concomitant]
     Indication: PROPHYLAXIS
     Dosage: 3 DF, QD
     Route: 048
     Dates: start: 20120502, end: 20120530

REACTIONS (5)
  - Decreased appetite [Recovered/Resolved]
  - Weight decreased [Recovering/Resolving]
  - Decreased appetite [Not Recovered/Not Resolved]
  - Haemoglobin decreased [Recovered/Resolved]
  - Blood uric acid increased [Recovered/Resolved]
